FAERS Safety Report 4383806-7 (Version None)
Quarter: 2004Q2

REPORT INFORMATION
  Report Type: 
  Country: None (occurrence: None)
  Receive Date: 20040608
  Receipt Date: 20031021
  Transmission Date: 20050107
  Serious: Yes (Other)
  Sender: FDA-Public Use
  Company Number: 200313875BCC

PATIENT
  Age: 34 Year
  Sex: Female
  Weight: 63.5036 kg

DRUGS (2)
  1. ALEVE [Suspect]
     Indication: INFLAMMATION
     Dosage: SEE IMAGE
     Dates: start: 20031017
  2. ALEVE [Suspect]
     Indication: INFLAMMATION
     Dosage: SEE IMAGE
     Dates: start: 20031020

REACTIONS (4)
  - DYSPHAGIA [None]
  - HYPERSENSITIVITY [None]
  - NERVOUSNESS [None]
  - THROAT TIGHTNESS [None]
